FAERS Safety Report 6864340-9 (Version None)
Quarter: 2010Q3

REPORT INFORMATION
  Report Type: 
  Country: None (occurrence: None)
  Receive Date: 20100721
  Receipt Date: 20080319
  Transmission Date: 20110219
  Serious: Yes (Other)
  Sender: FDA-Public Use
  Company Number: US-PFIZER INC-2008026061

PATIENT
  Sex: Female
  Weight: 95.5 kg

DRUGS (9)
  1. CHANTIX [Suspect]
     Indication: SMOKING CESSATION THERAPY
     Dates: start: 20080301
  2. PREDNISONE [Suspect]
     Indication: PNEUMONIA
     Dates: start: 20080301, end: 20080301
  3. LEVAQUIN [Suspect]
     Indication: PNEUMONIA
     Dates: start: 20080301, end: 20080301
  4. KLONOPIN [Suspect]
     Dates: end: 20080301
  5. RANITIDINE [Concomitant]
  6. TOPAMAX [Concomitant]
  7. SYMBICORT [Concomitant]
  8. ALBUTEROL [Concomitant]
  9. LAMICTAL [Concomitant]

REACTIONS (7)
  - DIARRHOEA [None]
  - DRUG ADMINISTRATION ERROR [None]
  - DRUG HYPERSENSITIVITY [None]
  - HALLUCINATION [None]
  - INFLUENZA [None]
  - SOMNOLENCE [None]
  - VOMITING [None]
